FAERS Safety Report 23576735 (Version 1)
Quarter: 2024Q1

REPORT INFORMATION
  Report Type: Spontaneous
  Country: HR (occurrence: HR)
  Receive Date: 20240228
  Receipt Date: 20240228
  Transmission Date: 20240410
  Serious: Yes (Other)
  Sender: FDA-Public Use
  Company Number: HR-SANDOZ-SDZ2024HR013229

PATIENT
  Sex: Female

DRUGS (12)
  1. VINCRISTINE SULFATE [Suspect]
     Active Substance: VINCRISTINE SULFATE
     Indication: Lymphadenopathy
     Dosage: UNK
     Route: 065
     Dates: start: 202309
  2. VINCRISTINE SULFATE [Suspect]
     Active Substance: VINCRISTINE SULFATE
     Dosage: CONTINUED TREATMENT WITH R-DAEPOCH DO 6 CY
     Route: 065
     Dates: start: 202401
  3. PREDNISOLONE [Suspect]
     Active Substance: PREDNISOLONE
     Indication: Lymphadenopathy
     Dosage: UNK
     Route: 065
     Dates: start: 202309
  4. PREDNISOLONE [Suspect]
     Active Substance: PREDNISOLONE
     Dosage: CONTINUED TREATMENT WITH R-DAEPOCH DO 6 CY
     Route: 065
     Dates: start: 202401
  5. ETOPOSIDE [Suspect]
     Active Substance: ETOPOSIDE
     Indication: Lymphadenopathy
     Dosage: UNK
     Route: 065
     Dates: start: 202309
  6. ETOPOSIDE [Suspect]
     Active Substance: ETOPOSIDE
     Dosage: CONTINUED TREATMENT WITH R-DAEPOCH DO 6 CY
     Route: 065
     Dates: start: 202401
  7. RITUXIMAB [Suspect]
     Active Substance: RITUXIMAB
     Indication: Lymphadenopathy
     Dosage: 1. CY 100+600MG IN SLOW INFUSION FROM 2. CY RIXATHON IN RAPID INFUSION OVER 90 MIN
     Route: 065
     Dates: start: 202309
  8. RITUXIMAB [Suspect]
     Active Substance: RITUXIMAB
     Dosage: CONTINUED TREATMENT WITH R-DAEPOCH DO 6 CY
     Route: 065
     Dates: start: 202401
  9. CYCLOPHOSPHAMIDE [Suspect]
     Active Substance: CYCLOPHOSPHAMIDE
     Indication: Lymphadenopathy
     Dosage: UNK
     Route: 065
     Dates: start: 202309
  10. CYCLOPHOSPHAMIDE [Suspect]
     Active Substance: CYCLOPHOSPHAMIDE
     Dosage: CONTINUED TREATMENT WITH R-DAEPOCH DO 6 CY
     Route: 065
     Dates: start: 202401
  11. DOXORUBICIN [Suspect]
     Active Substance: DOXORUBICIN
     Indication: Lymphadenopathy
     Dosage: UNK
     Route: 065
     Dates: start: 202309
  12. DOXORUBICIN [Suspect]
     Active Substance: DOXORUBICIN
     Dosage: CONTINUED TREATMENT WITH R-DAEPOCH DO 6 CY
     Route: 065
     Dates: start: 202401

REACTIONS (1)
  - Febrile neutropenia [Unknown]
